FAERS Safety Report 7107554-5 (Version None)
Quarter: 2010Q4

REPORT INFORMATION
  Report Type: 
  Country: None (occurrence: None)
  Receive Date: 20101117
  Receipt Date: 20101109
  Transmission Date: 20110411
  Serious: No
  Sender: FDA-Public Use
  Company Number: US-PFIZER INC-2010144109

PATIENT
  Sex: Male
  Weight: 90.703 kg

DRUGS (4)
  1. CELEBREX [Suspect]
     Indication: ARTHRITIS
     Dosage: 200 MG, DAILY
     Route: 048
     Dates: start: 20101001, end: 20101108
  2. SIMVASTATIN [Concomitant]
     Dosage: UNK
  3. LIPITOR [Concomitant]
     Dosage: UNK
  4. DOXAZOSIN [Concomitant]
     Dosage: UNK

REACTIONS (2)
  - PRURITUS [None]
  - SCRATCH [None]
